FAERS Safety Report 7752969 (Version 6)
Quarter: 2014Q1

REPORT INFORMATION
  Report Type: Report from Study
  Country: NO (occurrence: NO)
  Receive Date: 20110110
  Receipt Date: 20140120
  Transmission Date: 20141002
  Serious: Yes (Other)
  Sender: FDA-Public Use
  Company Number: NO-BIOGENIDEC-2011BI000529

PATIENT
  Age: 50 Year
  Sex: Female

DRUGS (3)
  1. TYSABRI [Suspect]
     Indication: RELAPSING-REMITTING MULTIPLE SCLEROSIS
     Route: 042
     Dates: start: 20080219, end: 20101208
  2. VITAMINS [Concomitant]
  3. MINERALS [Concomitant]

REACTIONS (1)
  - Malignant melanoma in situ [Recovered/Resolved]
